FAERS Safety Report 9205185 (Version 1)
Quarter: 2013Q2

REPORT INFORMATION
  Report Type: Spontaneous
  Country: US (occurrence: None)
  Receive Date: 20130401
  Receipt Date: 20130401
  Transmission Date: 20140414
  Serious: No
  Sender: FDA-Public Use
  Company Number: None

PATIENT
  Age: 85 Year
  Sex: Male
  Weight: 83.05 kg

DRUGS (3)
  1. ZOSYN [Suspect]
     Route: 042
     Dates: start: 20130321, end: 20130323
  2. VANCOMYCIN [Suspect]
     Route: 042
     Dates: start: 20130321, end: 20130423
  3. HEPARIN SODIUM [Concomitant]

REACTIONS (1)
  - Thrombocytopenia [None]
